FAERS Safety Report 6584947-6 (Version None)
Quarter: 2010Q1

REPORT INFORMATION
  Report Type: 
  Country: None (occurrence: None)
  Receive Date: 20100204
  Receipt Date: 20100121
  Transmission Date: 20100710
  Serious: Yes (Hospitalization)
  Sender: FDA-Public Use
  Company Number: 230558J10USA

PATIENT
  Age: 51 Year
  Sex: Male

DRUGS (3)
  1. REBIF [Suspect]
     Indication: MULTIPLE SCLEROSIS
     Dosage: 8.8 MCG, 3 IN 1 WEEKS, SUBCUTANEOUS
     Route: 058
     Dates: start: 20100113, end: 20100113
  2. UNSPECIFIED PREMEDICATION (ALL OTHER THERAPEUTIC PRODUCTS) [Concomitant]
  3. MULTIVITAMIN (MULTIVITAMIN /00831701/) [Concomitant]

REACTIONS (8)
  - ASTHENIA [None]
  - DYSARTHRIA [None]
  - INFECTION [None]
  - MOVEMENT DISORDER [None]
  - MUSCULOSKELETAL STIFFNESS [None]
  - SPEECH DISORDER [None]
  - TREMOR [None]
  - URINARY INCONTINENCE [None]
